FAERS Safety Report 4570587-7 (Version None)
Quarter: 2005Q1

REPORT INFORMATION
  Report Type: 
  Country: None (occurrence: None)
  Receive Date: 20050204
  Receipt Date: 20041229
  Transmission Date: 20050727
  Serious: Yes (Congenital Anomaly)
  Sender: FDA-Public Use
  Company Number: US-GLAXOSMITHKLINE-A0539917A

PATIENT
  Sex: Male
  Weight: 2.1 kg

DRUGS (2)
  1. COMBIVIR [Suspect]
     Indication: HIV INFECTION
     Dosage: 1TAB PER DAY
     Route: 048
     Dates: start: 20040629, end: 20041005
  2. VIRACEPT [Concomitant]
     Indication: HIV INFECTION
     Dosage: 2500MG PER DAY
     Dates: start: 20040629, end: 20041005

REACTIONS (6)
  - DRUG EXPOSURE DURING PREGNANCY [None]
  - MULTIPLE GASTROINTESTINAL ATRESIAS [None]
  - PELVIC ABSCESS [None]
  - PREMATURE BABY [None]
  - SHORT-BOWEL SYNDROME [None]
  - VOLVULUS OF BOWEL [None]
